FAERS Safety Report 25531560 (Version 4)
Quarter: 2025Q4

REPORT INFORMATION
  Report Type: Spontaneous
  Country: US (occurrence: US)
  Receive Date: 20250709
  Receipt Date: 20251229
  Transmission Date: 20260118
  Serious: No
  Sender: SANOFI AVENTIS
  Company Number: US-SA-2025SA190026

PATIENT
  Age: 14 Year
  Sex: Male

DRUGS (3)
  1. DUPIXENT [Suspect]
     Active Substance: DUPILUMAB
     Indication: Dermatitis allergic
     Dosage: 400 MG, 1X
     Route: 058
     Dates: start: 20250515, end: 20250515
  2. DUPIXENT [Suspect]
     Active Substance: DUPILUMAB
     Indication: Eczema
     Dosage: 200 MG, QOW
     Route: 058
     Dates: start: 202505
  3. DUPIXENT [Suspect]
     Active Substance: DUPILUMAB
     Indication: Pruritus

REACTIONS (4)
  - Rebound eczema [Recovered/Resolved]
  - Eczema [Recovering/Resolving]
  - Inappropriate schedule of product administration [Recovered/Resolved]
  - Product use in unapproved indication [Unknown]

NARRATIVE: CASE EVENT DATE: 20250101
